FAERS Safety Report 19209778 (Version 5)
Quarter: 2021Q4

REPORT INFORMATION
  Report Type: Report from Study
  Country: US (occurrence: US)
  Receive Date: 20210504
  Receipt Date: 20211106
  Transmission Date: 20220304
  Serious: Yes (Hospitalization, Other)
  Sender: FDA-Public Use
  Company Number: NVSC2021US090023

PATIENT
  Age: 57 Year
  Sex: Female

DRUGS (4)
  1. ENTRESTO [Suspect]
     Active Substance: SACUBITRIL\VALSARTAN
     Indication: Product used for unknown indication
     Dosage: 1 DF (24/26 MG)
     Route: 065
     Dates: start: 202009
  2. HUMIRA [Concomitant]
     Active Substance: ADALIMUMAB
     Indication: Rheumatoid arthritis
     Dosage: UNK UNK, UNKNOWN
     Route: 065
  3. INSULIN NOS [Concomitant]
     Active Substance: INSULIN NOS
     Indication: Product used for unknown indication
     Dosage: 35 UNITS TID
     Route: 065
  4. INSULIN NOS [Concomitant]
     Active Substance: INSULIN NOS
     Dosage: UNK UNK, BID (65 UNITS IN THE AM AND 40 UNITS IN THE PM)
     Route: 065

REACTIONS (17)
  - Feeling abnormal [Unknown]
  - Blood glucose increased [Recovering/Resolving]
  - Urinary tract infection [Unknown]
  - Nephrolithiasis [Unknown]
  - Dyspnoea [Recovered/Resolved]
  - Dehydration [Recovering/Resolving]
  - Diarrhoea [Unknown]
  - Peripheral swelling [Recovered/Resolved]
  - Blood pressure decreased [Recovering/Resolving]
  - Diaphragmatic paralysis [Unknown]
  - Pyrexia [Recovered/Resolved]
  - Chills [Recovered/Resolved]
  - Arthralgia [Recovering/Resolving]
  - Nausea [Recovered/Resolved]
  - Fatigue [Recovering/Resolving]
  - Malaise [Unknown]
  - Illness [Unknown]

NARRATIVE: CASE EVENT DATE: 20210101
